FAERS Safety Report 18511497 (Version 2)
Quarter: 2021Q1

REPORT INFORMATION
  Report Type: Report from Study
  Country: CN (occurrence: CN)
  Receive Date: 20201117
  Receipt Date: 20210216
  Transmission Date: 20210419
  Serious: Yes (Other)
  Sender: FDA-Public Use
  Company Number: CN-OTSUKA-2020_027965

PATIENT

DRUGS (1)
  1. DECITABINE. [Suspect]
     Active Substance: DECITABINE
     Indication: ACUTE MYELOID LEUKAEMIA
     Dosage: UNK (5 MG/M2)
     Route: 042

REACTIONS (20)
  - Blood uric acid increased [Unknown]
  - Thrombocytopenia [Unknown]
  - Adverse event [Unknown]
  - Gamma-glutamyltransferase increased [Unknown]
  - Pleural effusion [Unknown]
  - Constipation [Unknown]
  - Anaemia [Unknown]
  - Incorrect dose administered [Unknown]
  - Decreased appetite [Unknown]
  - Diarrhoea [Unknown]
  - Off label use [Unknown]
  - Blood creatinine increased [Unknown]
  - Oedema peripheral [Unknown]
  - Vomiting [Unknown]
  - Leukocytosis [Unknown]
  - Neutropenia [Unknown]
  - Alanine aminotransferase increased [Unknown]
  - Nausea [Unknown]
  - Rash [Unknown]
  - Epistaxis [Unknown]
